FAERS Safety Report 16868477 (Version 1)
Quarter: 2019Q4

REPORT INFORMATION
  Report Type: Spontaneous
  Country: US (occurrence: US)
  Receive Date: 20190930
  Receipt Date: 20190930
  Transmission Date: 20200122
  Serious: Yes (Death)
  Sender: FDA-Public Use
  Company Number: None

PATIENT
  Age: 71 Year
  Sex: Female
  Weight: 49.46 kg

DRUGS (1)
  1. ETOPOSIDE. [Suspect]
     Active Substance: ETOPOSIDE
     Dosage: ?          OTHER FREQUENCY:X 3 DAYS Q21 DAYS;?
     Route: 042
     Dates: start: 20190724, end: 20190930

REACTIONS (1)
  - Death [None]

NARRATIVE: CASE EVENT DATE: 20190930
